FAERS Safety Report 10186055 (Version 2)
Quarter: 2014Q2

REPORT INFORMATION
  Report Type: Spontaneous
  Country: US (occurrence: US)
  Receive Date: 20140521
  Receipt Date: 20140607
  Transmission Date: 20141212
  Serious: No
  Sender: FDA-Public Use
  Company Number: US-009507513-1405USA010002

PATIENT
  Sex: Female
  Weight: 77.98 kg

DRUGS (1)
  1. OXYTROL FOR WOMEN [Suspect]
     Indication: PRODUCT USED FOR UNKNOWN INDICATION
     Dosage: UNK, UNKNOWN
     Route: 062

REACTIONS (3)
  - Gastrointestinal hypomotility [Unknown]
  - Application site rash [Unknown]
  - Application site pruritus [Unknown]
